FAERS Safety Report 12503305 (Version 3)
Quarter: 2016Q3

REPORT INFORMATION
  Report Type: Spontaneous
  Country: GB (occurrence: GB)
  Receive Date: 20160628
  Receipt Date: 20160908
  Transmission Date: 20161109
  Serious: Yes (Life-Threatening, Hospitalization, Other)
  Sender: FDA-Public Use
  Company Number: GB-AUROBINDO-AUR-APL-2016-07945

PATIENT
  Age: 67 Year
  Sex: Female
  Weight: 80 kg

DRUGS (12)
  1. ADCAL D3 [Concomitant]
     Active Substance: CALCIUM CARBONATE\CHOLECALCIFEROL
     Indication: PRODUCT USED FOR UNKNOWN INDICATION
     Dosage: UNK
     Route: 065
     Dates: start: 20151016
  2. DENOSUMAB [Concomitant]
     Active Substance: DENOSUMAB
     Indication: BONE DISORDER
     Dosage: 1 DF, UNK
     Route: 065
  3. DOCETAXEL. [Concomitant]
     Active Substance: DOCETAXEL
     Indication: BREAST CANCER STAGE IV
     Route: 065
     Dates: end: 20160210
  4. CLEXANE [Suspect]
     Active Substance: ENOXAPARIN SODIUM
     Indication: PERIPHERAL EMBOLISM
  5. CIPROFLOXACIN. [Suspect]
     Active Substance: CIPROFLOXACIN
     Indication: ANTIBIOTIC THERAPY
     Route: 065
  6. OMEPRAZOLE. [Concomitant]
     Active Substance: OMEPRAZOLE
     Indication: PRODUCT USED FOR UNKNOWN INDICATION
     Route: 065
  7. HERCEPTIN [Concomitant]
     Active Substance: TRASTUZUMAB
     Indication: BREAST CANCER STAGE IV
     Dosage: 1 DF, UNK
     Route: 065
  8. PERTUZUMAB [Concomitant]
     Active Substance: PERTUZUMAB
     Indication: BREAST CANCER STAGE IV
     Dosage: 1 DF, UNK
     Route: 065
  9. CLEXANE [Suspect]
     Active Substance: ENOXAPARIN SODIUM
     Indication: PERIPHERAL EMBOLISM
     Dosage: 6 WEEK COURSE ENDED AFTER 32 DAYS 5SA23(12/16) 5SA74(01/17) 5SF52(03/17) 5SL64(08/17) 5SK16 (05/17).
     Route: 058
     Dates: start: 20160317, end: 20160417
  10. LETROZOLE. [Concomitant]
     Active Substance: LETROZOLE
     Indication: PRODUCT USED FOR UNKNOWN INDICATION
     Route: 065
  11. ZOMORPH [Concomitant]
     Active Substance: MORPHINE SULFATE
     Indication: PRODUCT USED FOR UNKNOWN INDICATION
     Route: 065
  12. PERJETA [Concomitant]
     Active Substance: PERTUZUMAB
     Indication: PRODUCT USED FOR UNKNOWN INDICATION
     Route: 065

REACTIONS (11)
  - Blister [Recovering/Resolving]
  - Dermatitis [Recovering/Resolving]
  - Burning sensation [Recovering/Resolving]
  - Protein deficiency [Unknown]
  - Skin haemorrhage [Recovering/Resolving]
  - Scab [Recovering/Resolving]
  - Tachycardia [Unknown]
  - Pain [Not Recovered/Not Resolved]
  - Rash erythematous [Recovering/Resolving]
  - Erythema multiforme [Recovering/Resolving]
  - Skin erosion [Recovering/Resolving]

NARRATIVE: CASE EVENT DATE: 20160406
